FAERS Safety Report 15533135 (Version 1)
Quarter: 2018Q4

REPORT INFORMATION
  Report Type: Spontaneous
  Country: DE (occurrence: DE)
  Receive Date: 20181019
  Receipt Date: 20181019
  Transmission Date: 20190205
  Serious: Yes (Death, Other)
  Sender: FDA-Public Use
  Company Number: DE-JNJFOC-20181025523

PATIENT
  Age: 76 Year
  Sex: Male

DRUGS (1)
  1. XARELTO [Suspect]
     Active Substance: RIVAROXABAN
     Indication: ATRIAL FIBRILLATION
     Route: 048

REACTIONS (4)
  - Dysarthria [Unknown]
  - Hemiplegia [Unknown]
  - Disturbance in attention [Unknown]
  - Basal ganglia haemorrhage [Fatal]

NARRATIVE: CASE EVENT DATE: 20180924
